FAERS Safety Report 7127947-X (Version None)
Quarter: 2010Q4

REPORT INFORMATION
  Report Type: 
  Country: None (occurrence: None)
  Receive Date: 20101130
  Receipt Date: 20101119
  Transmission Date: 20110411
  Serious: Yes (Hospitalization)
  Sender: FDA-Public Use
  Company Number: CA-JNJFOC-20101108402

PATIENT
  Sex: Female
  Weight: 64 kg

DRUGS (11)
  1. REMICADE [Suspect]
     Indication: CROHN'S DISEASE
     Route: 042
  2. CYMBALTA [Concomitant]
     Route: 048
  3. CODEINE PHOSPHATE [Concomitant]
     Route: 048
  4. OXAZEPAM [Concomitant]
     Route: 048
  5. AZATHIOPRINE [Concomitant]
  6. PROCHLORPERAZINE [Concomitant]
     Route: 048
  7. SERTRALINE HYDROCHLORIDE [Concomitant]
     Dosage: 300 MG 2 TABS 3 TIMES A DAY
  8. IBUPROFEN [Concomitant]
  9. DIVALPROEX SODIUM [Concomitant]
     Route: 048
  10. CLONAZEPAM [Concomitant]
  11. PANTOPRAZOLE [Concomitant]

REACTIONS (1)
  - LYMPHOMA [None]
